FAERS Safety Report 9271047 (Version 2)
Quarter: 2013Q2

REPORT INFORMATION
  Report Type: Spontaneous
  Country: US (occurrence: US)
  Receive Date: 20130506
  Receipt Date: 20130522
  Transmission Date: 20140414
  Serious: Yes (Other)
  Sender: FDA-Public Use
  Company Number: US-BAYER-2013-052661

PATIENT
  Age: 27 Year
  Sex: Female

DRUGS (1)
  1. MIRENA [Suspect]
     Indication: CONTRACEPTION
     Dosage: 20 MCG/24HR, CONT
     Route: 015
     Dates: start: 2009, end: 20130418

REACTIONS (16)
  - Device dislocation [None]
  - Pelvic pain [None]
  - Amenorrhoea [None]
  - Urticaria [None]
  - Pruritus [None]
  - Abdominal distension [None]
  - Abdominal pain upper [None]
  - Dyspareunia [None]
  - Alopecia [None]
  - Breast pain [None]
  - Breast tenderness [None]
  - Depressed mood [None]
  - Asthenia [None]
  - Mood swings [None]
  - Libido decreased [None]
  - Feeling abnormal [None]
